FAERS Safety Report 25973976 (Version 1)
Quarter: 2025Q4

REPORT INFORMATION
  Report Type: Spontaneous
  Country: GB (occurrence: GB)
  Receive Date: 20251029
  Receipt Date: 20251029
  Transmission Date: 20260117
  Serious: Yes (Death, Other)
  Sender: TEVA
  Company Number: GB-MHRA-37350174

PATIENT
  Age: 73 Year

DRUGS (1)
  1. PREDNISOLONE [Suspect]
     Active Substance: PREDNISOLONE
     Indication: Muscular weakness
     Route: 065

REACTIONS (3)
  - Completed suicide [Fatal]
  - Pneumonia [Not Recovered/Not Resolved]
  - Mania [Not Recovered/Not Resolved]
